FAERS Safety Report 5205815-8 (Version None)
Quarter: 2007Q1

REPORT INFORMATION
  Report Type: 
  Country: None (occurrence: None)
  Receive Date: 20070108
  Receipt Date: 20070108
  Transmission Date: 20070707
  Serious: Yes (Death, Life-Threatening, Hospitalization)
  Sender: FDA-Public Use
  Company Number: None

PATIENT
  Age: 75 Year
  Sex: Female
  Weight: 63.5036 kg

DRUGS (3)
  1. NEULASTA [Suspect]
     Indication: MYELODYSPLASTIC SYNDROME
     Dosage: SQ
     Route: 058
     Dates: start: 20061103, end: 20061103
  2. NEULASTA [Suspect]
     Indication: NEUTROPENIA
     Dosage: SQ
     Route: 058
     Dates: start: 20061103, end: 20061103
  3. NEUPOGEN [Suspect]
     Dosage: SQ
     Route: 058
     Dates: start: 20061010, end: 20061031

REACTIONS (4)
  - ACUTE RESPIRATORY DISTRESS SYNDROME [None]
  - CHILLS [None]
  - PYREXIA [None]
  - RESPIRATORY ARREST [None]
